FAERS Safety Report 23349831 (Version 1)
Quarter: 2023Q4

REPORT INFORMATION
  Report Type: Spontaneous
  Country: FR (occurrence: None)
  Receive Date: 20231229
  Receipt Date: 20231229
  Transmission Date: 20240110
  Serious: Yes (Hospitalization)
  Sender: FDA-Public Use
  Company Number: 2023A291450

PATIENT
  Age: 26 Year
  Sex: Female

DRUGS (5)
  1. QUETIAPINE FUMARATE [Suspect]
     Active Substance: QUETIAPINE FUMARATE
     Indication: Poisoning deliberate
     Dosage: ONE WEEK DOSE OF ITS PILL BOX IN 1 SINGLE DOSE
     Route: 048
     Dates: start: 20231209
  2. LORAZEPAM [Suspect]
     Active Substance: LORAZEPAM
     Indication: Poisoning deliberate
     Dosage: ONE WEEK DOSE OF ITS PILL BOX IN 1 SINGLE DOSE28.0DF UNKNOWN
     Route: 048
     Dates: start: 20231209
  3. ELIQUIS [Suspect]
     Active Substance: APIXABAN
     Indication: Poisoning deliberate
     Dosage: ONE WEEK DOSE OF ITS PILL BOX IN 1 SINGLE DOSE
     Route: 048
     Dates: start: 20231209
  4. VENLAFAXINE [Suspect]
     Active Substance: VENLAFAXINE HYDROCHLORIDE
     Indication: Poisoning deliberate
     Dosage: 21 TABLETS OF VENLAFAXINE 75 MG
     Route: 048
     Dates: start: 20231209
  5. CHLORPROMAZINE [Suspect]
     Active Substance: CHLORPROMAZINE
     Indication: Poisoning deliberate
     Route: 048
     Dates: start: 20231209

REACTIONS (3)
  - Poisoning deliberate [Recovered/Resolved]
  - Abdominal pain [Recovered/Resolved]
  - Cognitive disorder [Recovered/Resolved]

NARRATIVE: CASE EVENT DATE: 20231209
